FAERS Safety Report 9354299 (Version 1)
Quarter: 2013Q2

REPORT INFORMATION
  Report Type: Spontaneous
  Country: US (occurrence: US)
  Receive Date: 20130618
  Receipt Date: 20130618
  Transmission Date: 20140414
  Serious: Yes (Other)
  Sender: FDA-Public Use
  Company Number: US-TEVA-366793USA

PATIENT
  Sex: Female
  Weight: 59.02 kg

DRUGS (3)
  1. COPAXONE [Suspect]
     Indication: MULTIPLE SCLEROSIS
     Route: 058
     Dates: start: 20080317, end: 20120808
  2. PRENATAL VITAMINS [Concomitant]
     Dosage: 1 DOSAGE FORMS DAILY;
     Dates: start: 20120101
  3. VITAMIN D [Concomitant]
     Dates: start: 2009

REACTIONS (5)
  - HELLP syndrome [Unknown]
  - Multiple sclerosis relapse [Recovered/Resolved]
  - Pre-eclampsia [Unknown]
  - VIIth nerve paralysis [Unknown]
  - Premature baby [Unknown]
